FAERS Safety Report 13350504 (Version 2)
Quarter: 2017Q2

REPORT INFORMATION
  Report Type: Spontaneous
  Country: DE (occurrence: DE)
  Receive Date: 20170320
  Receipt Date: 20170405
  Transmission Date: 20170830
  Serious: Yes (Death)
  Sender: FDA-Public Use
  Company Number: DE-UNITED THERAPEUTICS-UNT-2017-003611

PATIENT
  Sex: Male

DRUGS (1)
  1. REMODULIN [Suspect]
     Active Substance: TREPROSTINIL
     Indication: PULMONARY ARTERIAL HYPERTENSION
     Dosage: UNK
     Route: 041
     Dates: start: 20150416, end: 20170209

REACTIONS (1)
  - Death [Fatal]

NARRATIVE: CASE EVENT DATE: 20170209
